FAERS Safety Report 5314191-1 (Version None)
Quarter: 2007Q2

REPORT INFORMATION
  Report Type: 
  Country: None (occurrence: None)
  Receive Date: 20070501
  Receipt Date: 20070426
  Transmission Date: 20071010
  Serious: Yes (Other)
  Sender: FDA-Public Use
  Company Number: US-MERCK-0606USA03134

PATIENT
  Age: 96 Year
  Sex: Female
  Weight: 46 kg

DRUGS (2)
  1. FOSAMAX [Suspect]
     Indication: OSTEOPOROSIS
     Route: 048
     Dates: end: 20060609
  2. [THERAPY UNSPECIFIED] [Concomitant]
     Indication: THYROID DISORDER
     Route: 065

REACTIONS (3)
  - IMPAIRED HEALING [None]
  - OSTEOMYELITIS [None]
  - OSTEONECROSIS [None]
